FAERS Safety Report 18935334 (Version 1)
Quarter: 2021Q1

REPORT INFORMATION
  Report Type: Spontaneous
  Country: JP (occurrence: JP)
  Receive Date: 20210224
  Receipt Date: 20210224
  Transmission Date: 20210420
  Serious: Yes (Other)
  Sender: FDA-Public Use
  Company Number: JP-009507513-2102JPN002013J

PATIENT
  Age: 8 Decade
  Sex: Male

DRUGS (3)
  1. KEYTRUDA [Suspect]
     Active Substance: PEMBROLIZUMAB
     Indication: HEAD AND NECK CANCER
     Dosage: 200 MILLIGRAM, Q3W
     Route: 041
  2. CISPLATIN. [Concomitant]
     Active Substance: CISPLATIN
     Dosage: 100 MILLIGRAM, Q3W
     Route: 041
  3. 5?FU [Concomitant]
     Active Substance: FLUOROURACIL
     Dosage: 1000 MILLIGRAM, Q3W
     Route: 041

REACTIONS (1)
  - Myelosuppression [Unknown]
